FAERS Safety Report 4829318-5 (Version None)
Quarter: 2005Q4

REPORT INFORMATION
  Report Type: 
  Country: None (occurrence: None)
  Receive Date: 20051028
  Receipt Date: 20050726
  Transmission Date: 20060501
  Serious: No
  Sender: FDA-Public Use
  Company Number: US144108

PATIENT
  Sex: Female

DRUGS (2)
  1. KEPIVANCE [Suspect]
     Indication: MUCOSAL INFLAMMATION
     Dosage: 1 IN 1 DAYS
     Dates: start: 20050716, end: 20050721
  2. MELPHALAN [Concomitant]

REACTIONS (1)
  - RASH [None]
